FAERS Safety Report 4985839-6 (Version None)
Quarter: 2006Q2

REPORT INFORMATION
  Report Type: 
  Country: None (occurrence: None)
  Receive Date: 20060428
  Receipt Date: 20050317
  Transmission Date: 20061013
  Serious: No
  Sender: FDA-Public Use
  Company Number: US-GLAXOSMITHKLINE-A0550263A

PATIENT
  Age: 72 Year
  Sex: Female

DRUGS (4)
  1. ZOFRAN [Suspect]
     Indication: PROPHYLAXIS OF NAUSEA AND VOMITING
     Dosage: 4MG PER DAY
     Route: 048
     Dates: start: 20050312, end: 20050315
  2. WARFARIN SODIUM [Concomitant]
  3. ANTIBIOTIC [Concomitant]
  4. PAIN MEDICATION [Concomitant]
     Route: 048

REACTIONS (1)
  - THERMAL BURN [None]
